FAERS Safety Report 16730096 (Version 1)
Quarter: 2019Q3

REPORT INFORMATION
  Report Type: Spontaneous
  Country: US (occurrence: US)
  Receive Date: 20190822
  Receipt Date: 20190822
  Transmission Date: 20191005
  Serious: No
  Sender: FDA-Public Use
  Company Number: US-PACIRA-201500187

PATIENT
  Age: 38 Year
  Sex: Female

DRUGS (7)
  1. MARCAINE [Concomitant]
     Active Substance: BUPIVACAINE HYDROCHLORIDE
     Dosage: 40 CC, 1X, FREQUENCY : 1X
  2. EXPAREL [Suspect]
     Active Substance: BUPIVACAINE
     Indication: POSTOPERATIVE ANALGESIA
     Dosage: 20 CC DILUTED WITH SALINE TOTAL VOLUME 60 CC, THEN SPLIT INTO 3 20 CC INJECTIONS
     Route: 050
  3. CEFAZOLIN [Concomitant]
     Active Substance: CEFAZOLIN
     Indication: INFECTION PROPHYLAXIS
     Dosage: 2 G, Q8H FOR 24 HOURS BY IVPB, FREQUENCY : Q8H
     Route: 042
  4. GENTAMICIN. [Concomitant]
     Active Substance: GENTAMICIN
     Indication: INFECTION PROPHYLAXIS
     Dosage: 360 MG, 1X, FREQUENCY : 1X
     Route: 042
  5. BUPIVACAINE. [Concomitant]
     Active Substance: BUPIVACAINE
     Indication: SPINAL ANAESTHESIA
     Dosage: 3 CC, 1X, FREQUENCY : 1X
     Route: 008
  6. KETOROLAC [Concomitant]
     Active Substance: KETOROLAC TROMETHAMINE
     Dosage: INJECTION 15 MG, 1X, FREQUENCY : 1X
     Route: 050
  7. DURAMORPH [Concomitant]
     Active Substance: MORPHINE SULFATE
     Dosage: INJECTION 5 MG, 1X, FREQUENCY : 1X
     Route: 050

REACTIONS (6)
  - Product administration error [Recovered/Resolved]
  - Labelled drug-drug interaction medication error [Recovered/Resolved]
  - Sciatic nerve palsy [Recovered/Resolved]
  - Pain [Recovered/Resolved]
  - Sensory loss [Recovered/Resolved]
  - Movement disorder [Recovered/Resolved]
